FAERS Safety Report 13667176 (Version 2)
Quarter: 2018Q2

REPORT INFORMATION
  Report Type: Spontaneous
  Country: US (occurrence: US)
  Receive Date: 20170619
  Receipt Date: 20180614
  Transmission Date: 20180711
  Serious: No
  Sender: FDA-Public Use
  Company Number: US-BAUSCH-BL-2017-008861

PATIENT
  Sex: Female

DRUGS (1)
  1. RELISTOR [Suspect]
     Active Substance: METHYLNALTREXONE BROMIDE
     Indication: PRODUCT USED FOR UNKNOWN INDICATION
     Dosage: 12 MG/0.6 ML
     Route: 065
     Dates: start: 20170322

REACTIONS (3)
  - Product packaging issue [Unknown]
  - Drug ineffective [Unknown]
  - Burning sensation [Not Recovered/Not Resolved]
